FAERS Safety Report 18814081 (Version 1)
Quarter: 2021Q1

REPORT INFORMATION
  Report Type: Spontaneous
  Country: US (occurrence: US)
  Receive Date: 20210201
  Receipt Date: 20210201
  Transmission Date: 20210419
  Serious: Yes (Other)
  Sender: FDA-Public Use
  Company Number: US-AUROBINDO-AUR-APL-2020-039423

PATIENT

DRUGS (3)
  1. DULOXETINE DELAYED?RELEASE CAPSULES USP 30 MG [Suspect]
     Active Substance: DULOXETINE
     Indication: ANXIETY
     Dosage: 30?60 MG
     Route: 065
     Dates: start: 2017, end: 201806
  2. DULOXETINE DELAYED?RELEASE CAPSULES USP 30 MG [Suspect]
     Active Substance: DULOXETINE
     Indication: DEPRESSION
     Dosage: 30 MILLIGRAM
     Route: 065
     Dates: start: 20191122
  3. DULOXETINE DELAYED?RELEASE CAPSULES USP 30 MG [Suspect]
     Active Substance: DULOXETINE
     Indication: POST-TRAUMATIC STRESS DISORDER
     Dosage: 60 MILLIGRAM
     Route: 065

REACTIONS (7)
  - Tremor [Unknown]
  - Hallucination [Unknown]
  - Paraesthesia [Unknown]
  - Product substitution issue [Unknown]
  - Irritability [Unknown]
  - Paranoia [Unknown]
  - Parosmia [Unknown]
